FAERS Safety Report 6137368-4 (Version None)
Quarter: 2009Q1

REPORT INFORMATION
  Report Type: 
  Country: None (occurrence: None)
  Receive Date: 20090325
  Receipt Date: 20071212
  Transmission Date: 20090719
  Serious: Yes (Death)
  Sender: FDA-Public Use
  Company Number: ACETADOTE_032

PATIENT
  Sex: Female

DRUGS (3)
  1. ACETADOTE [Suspect]
     Indication: OVERDOSE
     Dosage: 300MG/KG INTRAVENOUS
     Route: 042
     Dates: start: 20071102
  2. ACETADOTE [Suspect]
     Dosage: 100MG/KG INTRAVENOUS
     Route: 042
  3. ACTIVATED CHARCOAL [Concomitant]

REACTIONS (1)
  - DEATH [None]
